FAERS Safety Report 5367389-0 (Version None)
Quarter: 2007Q2

REPORT INFORMATION
  Report Type: 
  Country: None (occurrence: None)
  Receive Date: 20070622
  Receipt Date: 20060911
  Transmission Date: 20071010
  Serious: No
  Sender: FDA-Public Use
  Company Number: US-ASTRAZENECA-2006UW17824

PATIENT
  Age: 79 Year
  Sex: Male

DRUGS (4)
  1. PULMICORT [Suspect]
     Indication: ASTHMA
     Route: 055
  2. ALBUTEROL [Concomitant]
  3. CROMOLYN SODIUM [Concomitant]
  4. THYROID TAB [Concomitant]

REACTIONS (2)
  - OXYGEN CONSUMPTION INCREASED [None]
  - POLLAKIURIA [None]
